FAERS Safety Report 4768930-9 (Version None)
Quarter: 2005Q3

REPORT INFORMATION
  Report Type: 
  Country: None (occurrence: None)
  Receive Date: 20050914
  Receipt Date: 20050831
  Transmission Date: 20060218
  Serious: Yes (Hospitalization)
  Sender: FDA-Public Use
  Company Number: HQWYE241502SEP05

PATIENT
  Age: 1 Year
  Sex: Female

DRUGS (2)
  1. CHILDREN'S ADVIL [Suspect]
     Indication: ARTHRALGIA
     Dosage: 1 DOSE FOR 9KG, ONE INTAKE,  ORAL
     Route: 048
     Dates: start: 20050718, end: 20050718
  2. ACETAMINOPHEN [Concomitant]

REACTIONS (12)
  - BLOOD PRESSURE INCREASED [None]
  - BODY TEMPERATURE DECREASED [None]
  - CONDITION AGGRAVATED [None]
  - FOETAL HEART RATE INCREASED [None]
  - HAEMOGLOBIN DECREASED [None]
  - INFLAMMATION [None]
  - JOINT EFFUSION [None]
  - JOINT LOCK [None]
  - MEAN CELL VOLUME DECREASED [None]
  - OSTEOARTHRITIS [None]
  - OSTEOMYELITIS [None]
  - PLATELET COUNT INCREASED [None]
